FAERS Safety Report 8542715-X (Version None)
Quarter: 2012Q3

REPORT INFORMATION
  Report Type: 
  Country: None (occurrence: None)
  Receive Date: 20120727
  Receipt Date: 20120718
  Transmission Date: 20120928
  Serious: Yes (Other)
  Sender: FDA-Public Use
  Company Number: US-BIOGENIDEC-2012BI026923

PATIENT
  Sex: Female

DRUGS (5)
  1. TYSABRI [Suspect]
     Indication: MULTIPLE SCLEROSIS
     Route: 042
     Dates: start: 20091016, end: 20110617
  2. PAIN MEDICATION (NOS) [Concomitant]
  3. PAIN MEDICATION (NOS) [Concomitant]
  4. PAIN MEDICATION (NOS) [Concomitant]
     Indication: ABDOMINAL PAIN
  5. PAIN MEDICATION (NOS) [Concomitant]
     Indication: PAIN IN EXTREMITY

REACTIONS (4)
  - FATIGUE [None]
  - INSOMNIA [None]
  - CONVULSION [None]
  - PSYCHOMOTOR HYPERACTIVITY [None]
